FAERS Safety Report 8951125 (Version 2)
Quarter: 2012Q4

REPORT INFORMATION
  Report Type: Report from Study
  Country: DE (occurrence: DE)
  Receive Date: 20121207
  Receipt Date: 20121217
  Transmission Date: 20130627
  Serious: Yes (Other)
  Sender: FDA-Public Use
  Company Number: PHHY2012DE110877

PATIENT
  Sex: Female

DRUGS (5)
  1. FTY 720 [Suspect]
     Indication: MULTIPLE SCLEROSIS
     Dosage: 0.5 mg, QD
     Route: 048
     Dates: start: 20110715
  2. VIT D [Concomitant]
     Indication: RELAPSING-REMITTING MULTIPLE SCLEROSIS
     Dosage: 3000 IU, TID
     Route: 048
     Dates: start: 20110211
  3. PANTOPRAZOLE [Concomitant]
     Indication: ABDOMINAL PAIN UPPER
     Dosage: 40 mg, QD
     Route: 048
     Dates: start: 20111105
  4. PROPOFOL [Concomitant]
     Indication: ANAESTHESIA
     Dosage: 170 mg, UNK
  5. RAPIFEN [Concomitant]
     Dosage: 1.5 mg, UNK

REACTIONS (2)
  - Papilloma viral infection [Not Recovered/Not Resolved]
  - Carcinoma in situ [Not Recovered/Not Resolved]
